FAERS Safety Report 7201912-6 (Version None)
Quarter: 2010Q4

REPORT INFORMATION
  Report Type: 
  Country: None (occurrence: None)
  Receive Date: 20101229
  Receipt Date: 20101228
  Transmission Date: 20110411
  Serious: Yes (Hospitalization, Other)
  Sender: FDA-Public Use
  Company Number: JP-PFIZER INC-2010156335

PATIENT
  Age: 73 Year
  Sex: Female
  Weight: 34 kg

DRUGS (13)
  1. VORICONAZOLE [Suspect]
     Indication: BRONCHOPULMONARY ASPERGILLOSIS
     Dosage: UNK
     Route: 048
     Dates: end: 20090701
  2. VORICONAZOLE [Suspect]
     Dosage: 200 MG, 2X/DAY
     Route: 041
     Dates: start: 20100423, end: 20100423
  3. VORICONAZOLE [Suspect]
     Dosage: 140 MG, 2X/DAY
     Route: 041
     Dates: start: 20100424, end: 20100503
  4. ISONIAZID [Concomitant]
  5. MEDICON [Concomitant]
     Indication: COUGH
     Dosage: 15 MG, 3X/DAY
     Route: 048
  6. JUVELA [Concomitant]
     Indication: PERIPHERAL VASCULAR DISORDER
     Dosage: 200 MG, 3X/DAY
     Route: 048
  7. MUCODYNE [Concomitant]
     Indication: BRONCHIECTASIS
     Dosage: 500 MG, 3X/DAY
     Route: 048
  8. LOXONIN [Concomitant]
     Indication: BACK PAIN
     Dosage: 60 MG, 3X/DAY
     Route: 048
  9. BIOFERMIN R [Concomitant]
     Indication: PROPHYLAXIS AGAINST DIARRHOEA
     Dosage: 1 G, 3X/DAY
     Route: 048
  10. GASTER [Concomitant]
     Indication: GASTRITIS
     Dosage: 20 MG, 2X/DAY
     Route: 048
  11. ERYTHROCIN LACTOBIONATE [Concomitant]
     Indication: BRONCHIECTASIS
     Dosage: 100 MG, 2X/DAY
     Route: 048
  12. SALIPARA CODEINE [Concomitant]
     Indication: COUGH
     Dosage: 2 ML, 3X/DAY
     Route: 048
  13. MAXIPIME [Concomitant]
     Indication: PNEUMONIA BACTERIAL
     Dosage: 1 G, 2X/DAY
     Route: 041
     Dates: start: 20100417, end: 20100422

REACTIONS (1)
  - PNEUMONIA [None]
